FAERS Safety Report 4385700-4 (Version None)
Quarter: 2004Q2

REPORT INFORMATION
  Report Type: 
  Country: None (occurrence: None)
  Receive Date: 20040625
  Receipt Date: 20040625
  Transmission Date: 20050107
  Serious: Yes (Hospitalization)
  Sender: FDA-Public Use
  Company Number: None

PATIENT
  Sex: Male
  Weight: 71.6683 kg

DRUGS (6)
  1. LANOXIN [Suspect]
     Indication: CARDIAC FAILURE CONGESTIVE
     Dosage: 0.125 MG DAILY ORAL
     Route: 048
     Dates: start: 19980909, end: 20040624
  2. OXYCODONE AND ACETAMINOPHEN [Concomitant]
  3. AMIODARONE HCL [Concomitant]
  4. BICALUTAMIDE [Concomitant]
  5. DILTIAZEM [Concomitant]
  6. FINASTERIDE [Concomitant]

REACTIONS (5)
  - ASTHENIA [None]
  - DEHYDRATION [None]
  - DRUG TOXICITY [None]
  - NAUSEA [None]
  - VOMITING [None]
